FAERS Safety Report 15288881 (Version 1)
Quarter: 2018Q3

REPORT INFORMATION
  Report Type: Spontaneous
  Country: US (occurrence: US)
  Receive Date: 20180802
  Receipt Date: 20180802
  Transmission Date: 20181010
  Serious: No
  Sender: FDA-Public Use
  Company Number: None

PATIENT
  Age: 64 Year
  Sex: Female

DRUGS (12)
  1. OMEGA 3 (FISH OIL) [Concomitant]
     Active Substance: OMEGA-3 FATTY ACIDS
  2. LOSARTAN 25MG [Suspect]
     Active Substance: LOSARTAN
  3. VITAMIN B [Concomitant]
     Active Substance: VITAMIN B
  4. CARVEDILOL. [Suspect]
     Active Substance: CARVEDILOL
  5. MAGNESIUM 400MG [Concomitant]
     Active Substance: MAGNESIUM
  6. LASIX [Suspect]
     Active Substance: FUROSEMIDE
  7. HUMALOG [Suspect]
     Active Substance: INSULIN LISPRO
  8. VITAMIN D3 [Concomitant]
     Active Substance: CHOLECALCIFEROL
  9. BASAGLAR [Suspect]
     Active Substance: INSULIN GLARGINE
  10. ASPIRIN. [Suspect]
     Active Substance: ASPIRIN
  11. POTASSIUM CHLORIDE. [Suspect]
     Active Substance: POTASSIUM CHLORIDE
  12. JARDIANCE [Suspect]
     Active Substance: EMPAGLIFLOZIN

REACTIONS (2)
  - Hypoacusis [None]
  - Swelling [None]

NARRATIVE: CASE EVENT DATE: 201803
